FAERS Safety Report 7533588-2 (Version None)
Quarter: 2011Q2

REPORT INFORMATION
  Report Type: 
  Country: None (occurrence: None)
  Receive Date: 20110608
  Receipt Date: 20060227
  Transmission Date: 20111010
  Serious: Yes (Hospitalization)
  Sender: FDA-Public Use
  Company Number: PHNU2006PL01160

PATIENT
  Sex: Male
  Weight: 75 kg

DRUGS (1)
  1. FLUVASTATIN SODIUM [Suspect]
     Dosage: 80 MG, QD
     Route: 048
     Dates: start: 20050827, end: 20060227

REACTIONS (1)
  - SYNCOPE [None]
